FAERS Safety Report 11147124 (Version 2)
Quarter: 2015Q2

REPORT INFORMATION
  Report Type: Report from Study
  Country: US (occurrence: US)
  Receive Date: 20150528
  Receipt Date: 20150623
  Transmission Date: 20150821
  Serious: Yes (Other)
  Sender: FDA-Public Use
  Company Number: US-GILEAD-2015-0155091

PATIENT
  Age: 56 Year
  Sex: Male
  Weight: 104.3 kg

DRUGS (2)
  1. SOFOSBUVIR [Suspect]
     Active Substance: SOFOSBUVIR
     Indication: CHRONIC HEPATITIS C
     Dosage: 1 DF, UNK
     Route: 048
     Dates: start: 201412
  2. RIBASPHERE [Suspect]
     Active Substance: RIBAVIRIN
     Indication: PRODUCT USED FOR UNKNOWN INDICATION
     Dosage: UNK
     Route: 065

REACTIONS (10)
  - Musculoskeletal pain [Unknown]
  - Rash [Unknown]
  - Asthenia [Unknown]
  - Headache [Unknown]
  - Irritability [Unknown]
  - Internal haemorrhage [Unknown]
  - Hypotension [Unknown]
  - Fatigue [Unknown]
  - Haematoma [Unknown]
  - Dizziness [Unknown]
